FAERS Safety Report 10282361 (Version 1)
Quarter: 2014Q3

REPORT INFORMATION
  Report Type: Spontaneous
  Country: BR (occurrence: BR)
  Receive Date: 20140707
  Receipt Date: 20140707
  Transmission Date: 20150326
  Serious: Yes (Other)
  Sender: FDA-Public Use
  Company Number: PHHY2014BR083334

PATIENT
  Age: 20 Year
  Sex: Male

DRUGS (1)
  1. TRILEPTAL [Suspect]
     Active Substance: OXCARBAZEPINE
     Indication: CONVULSION
     Dosage: UNK UKN, UNK
     Route: 048

REACTIONS (2)
  - Aspiration bronchial [Recovered/Resolved]
  - Dysphagia [Recovered/Resolved]
